FAERS Safety Report 5201824-3 (Version None)
Quarter: 2007Q1

REPORT INFORMATION
  Report Type: 
  Country: None (occurrence: None)
  Receive Date: 20070104
  Receipt Date: 20061222
  Transmission Date: 20070707
  Serious: Yes (Hospitalization)
  Sender: FDA-Public Use
  Company Number: 234244

PATIENT
  Age: 52 Year
  Sex: Male

DRUGS (2)
  1. RAPTIVA [Suspect]
     Indication: PSORIASIS
     Dosage: 0.85 ML, 1/WEEK, SUBCUTANEOUS
     Route: 058
     Dates: start: 20060713
  2. CLOBETASOL PROPIONATE (CLOBETASOL PROPIONATE) [Concomitant]

REACTIONS (12)
  - ASTHENIA [None]
  - FUNGAL INFECTION [None]
  - HYPERAESTHESIA [None]
  - HYPERKERATOSIS [None]
  - NO THERAPEUTIC RESPONSE [None]
  - OEDEMA PERIPHERAL [None]
  - ONYCHOLYSIS [None]
  - PARONYCHIA [None]
  - PLANTAR ERYTHEMA [None]
  - PSORIASIS [None]
  - SKIN EXFOLIATION [None]
  - SKIN INFECTION [None]
